FAERS Safety Report 14976530 (Version 1)
Quarter: 2018Q2

REPORT INFORMATION
  Report Type: Spontaneous
  Country: FR (occurrence: FR)
  Receive Date: 20180605
  Receipt Date: 20180605
  Transmission Date: 20180711
  Serious: Yes (Hospitalization)
  Sender: FDA-Public Use
  Company Number: PHHY2018FR013735

PATIENT
  Age: 62 Year
  Sex: Male
  Weight: 135 kg

DRUGS (7)
  1. KARDEGIC [Suspect]
     Active Substance: ASPIRIN DL-LYSINE
     Indication: ACUTE CORONARY SYNDROME
     Dosage: 2 DF (UG\LITRE), QD (1 MATIN ET SOIR)
     Route: 048
     Dates: start: 20170924
  2. CORDARONE [Suspect]
     Active Substance: AMIODARONE HYDROCHLORIDE
     Indication: ARRHYTHMIA
     Dosage: UNK (NON RENSEIGN?E)
     Route: 048
  3. PLAVIX [Suspect]
     Active Substance: CLOPIDOGREL BISULFATE
     Indication: ACUTE CORONARY SYNDROME
     Dosage: 1 DF (UG\LITRE), QD (1 LE MATIN)
     Route: 048
     Dates: start: 20170924
  4. PLAVIX [Suspect]
     Active Substance: CLOPIDOGREL BISULFATE
     Dosage: 1 DF (UG\LITRE), QD (1 LE MATIN)
     Route: 048
     Dates: start: 20170930
  5. CALCIPARINE [Suspect]
     Active Substance: HEPARIN CALCIUM
     Dosage: 1.5 ML, QD
     Route: 058
     Dates: start: 20171006
  6. VANCOMYCIN SANDOZ [Suspect]
     Active Substance: VANCOMYCIN
     Indication: STAPHYLOCOCCAL BACTERAEMIA
     Dosage: UNK (NON RENSEIGN?E)
     Route: 042
  7. CALCIPARINE [Suspect]
     Active Substance: HEPARIN CALCIUM
     Indication: THROMBOSIS PROPHYLAXIS
     Dosage: 1.5 ML, QD
     Route: 058
     Dates: start: 20170924

REACTIONS (1)
  - Erythrodermic psoriasis [Recovered/Resolved]

NARRATIVE: CASE EVENT DATE: 20170926
